FAERS Safety Report 7580739-X (Version None)
Quarter: 2011Q2

REPORT INFORMATION
  Report Type: 
  Country: None (occurrence: None)
  Receive Date: 20110629
  Receipt Date: 20110620
  Transmission Date: 20111010
  Serious: Yes (Hospitalization, Other)
  Sender: FDA-Public Use
  Company Number: US-ASTRAZENECA-2011SE28194

PATIENT
  Age: 46 Year
  Sex: Male
  Weight: 88.9 kg

DRUGS (17)
  1. SEROQUEL [Suspect]
     Route: 048
  2. SEROQUEL [Suspect]
     Indication: SLEEP DISORDER
     Route: 048
     Dates: start: 20080101
  3. LIPITOR [Concomitant]
  4. PERCOCET [Concomitant]
  5. SEROQUEL [Suspect]
     Indication: BIPOLAR DISORDER
     Route: 048
     Dates: start: 20080101
  6. SEROQUEL [Suspect]
     Route: 048
  7. XANAX [Concomitant]
  8. NEURONTIN [Concomitant]
  9. SEROQUEL [Suspect]
     Route: 048
  10. SEROQUEL [Suspect]
     Route: 048
  11. PLAVIX [Concomitant]
  12. SEROQUEL [Suspect]
     Route: 048
  13. SEROQUEL [Suspect]
     Route: 048
  14. LISINOPRIL [Concomitant]
  15. VALIUM [Concomitant]
  16. ASPIRIN [Concomitant]
  17. LOPRESSOR [Concomitant]

REACTIONS (6)
  - SYNCOPE [None]
  - MYOCARDIAL INFARCTION [None]
  - DRUG DOSE OMISSION [None]
  - BLOOD PRESSURE DECREASED [None]
  - INSOMNIA [None]
  - STENT PLACEMENT [None]
